FAERS Safety Report 21936212 (Version 2)
Quarter: 2023Q1

REPORT INFORMATION
  Report Type: Spontaneous
  Country: IT (occurrence: IT)
  Receive Date: 20230201
  Receipt Date: 20230208
  Transmission Date: 20230418
  Serious: Yes (Other)
  Sender: FDA-Public Use
  Company Number: IT-ROCHE-3230875

PATIENT
  Age: 45 Year
  Sex: Female

DRUGS (13)
  1. LENALIDOMIDE [Suspect]
     Active Substance: LENALIDOMIDE
     Indication: Diffuse large B-cell lymphoma
     Dosage: 4TH LINE SYSTEMIC TREATMENT, LENALIDOMIDE + RITUXI
     Route: 065
     Dates: start: 20221104
  2. RITUXIMAB [Suspect]
     Active Substance: RITUXIMAB
     Indication: Diffuse large B-cell lymphoma
     Dosage: 1ST SYSTEMIC TREATMENT, RITUXIMAB-M-CODOX-IVAC
     Route: 065
     Dates: start: 20210626, end: 20210929
  3. RITUXIMAB [Suspect]
     Active Substance: RITUXIMAB
     Dosage: 4TH LINE SYSTEMIC TREATMENT, LENALIDOMIDE + RITUXI
     Route: 065
     Dates: start: 20221104
  4. RITUXIMAB [Suspect]
     Active Substance: RITUXIMAB
     Dosage: 2ND LINE SYSTEMIC TREATMENT, RITUXIMAB-BENDAMUSTIN
     Route: 065
     Dates: start: 20220412, end: 20220510
  5. POLIVY [Suspect]
     Active Substance: POLATUZUMAB VEDOTIN-PIIQ
     Indication: Diffuse large B-cell lymphoma
     Dosage: 2ND LINE SYSTEMIC TREATMENT, RITUXIMAB-BENDAMUSTIN
     Route: 065
     Dates: start: 20220412, end: 20220510
  6. IFOSFAMIDE [Suspect]
     Active Substance: IFOSFAMIDE
     Indication: Diffuse large B-cell lymphoma
     Dosage: 1ST LINE SYSTEMIC TREATMENT, RITUXIMAB-M-CODOX
     Route: 065
     Dates: start: 20210626, end: 20210929
  7. BENDAMUSTINE [Suspect]
     Active Substance: BENDAMUSTINE
     Indication: Diffuse large B-cell lymphoma
     Dosage: UNK
     Route: 065
     Dates: start: 20220412, end: 20220510
  8. ETOPOSIDE [Suspect]
     Active Substance: ETOPOSIDE
     Indication: Diffuse large B-cell lymphoma
     Dosage: 1ST LINE SYSTEMIC TREATMENT, RITUXIMAB-M-CODOX
     Route: 065
     Dates: start: 20210626, end: 20210929
  9. METHOTREXATE [Suspect]
     Active Substance: METHOTREXATE
     Indication: Diffuse large B-cell lymphoma
     Dosage: 1ST LINE SYSTEMIC TREATMENT, RITUXIMAB-M-CODOX
     Route: 065
     Dates: start: 20210626, end: 20210929
  10. CYCLOPHOSPHAMIDE [Suspect]
     Active Substance: CYCLOPHOSPHAMIDE
     Indication: Diffuse large B-cell lymphoma
     Dosage: 1ST LINE SYSTEMIC TREATMENT, RITUXIMAB-M-CODOX
     Route: 065
     Dates: start: 20210626, end: 20210929
  11. VINCRISTINE [Suspect]
     Active Substance: VINCRISTINE
     Indication: Diffuse large B-cell lymphoma
     Dosage: 1ST LINE SYSTEMIC TREATMENT, RITUXIMAB-M-CODOX
     Route: 065
     Dates: start: 20210626, end: 20210929
  12. DOXORUBICIN [Suspect]
     Active Substance: DOXORUBICIN
     Indication: Diffuse large B-cell lymphoma
     Dosage: 1ST LINE SYSTEMIC TREATMENT, RITUXIMAB-M-CODOX
     Route: 065
     Dates: start: 20210626, end: 20210929
  13. CYTARABINE [Suspect]
     Active Substance: CYTARABINE
     Indication: Diffuse large B-cell lymphoma
     Dosage: 1ST LINE SYSTEMIC TREATMENT, RITUXIMAB-M-CODOX
     Route: 065
     Dates: start: 20210626, end: 20210929

REACTIONS (3)
  - Diffuse large B-cell lymphoma [Unknown]
  - Disease progression [Unknown]
  - Off label use [Unknown]
